FAERS Safety Report 5999578-6 (Version None)
Quarter: 2008Q4

REPORT INFORMATION
  Report Type: 
  Country: None (occurrence: None)
  Receive Date: 20081211
  Receipt Date: 20081211
  Transmission Date: 20090506
  Serious: No
  Sender: FDA-Public Use
  Company Number: None

PATIENT
  Age: 65 Year
  Sex: Male
  Weight: 84.8226 kg

DRUGS (2)
  1. METOPROLOL SUCCINATE EXTENDED RELEASE [Suspect]
     Indication: ATRIAL FIBRILLATION
     Dosage: 100 MG. 1 A DAY MOUTH
     Route: 048
     Dates: start: 20081120, end: 20081128
  2. METOPROLOL SUCCINATE EXTENDED RELEASE [Suspect]
     Indication: CARDIAC FAILURE CONGESTIVE
     Dosage: 100 MG. 1 A DAY MOUTH
     Route: 048
     Dates: start: 20081120, end: 20081128

REACTIONS (5)
  - ANXIETY [None]
  - DEPRESSION [None]
  - LIP DISCOLOURATION [None]
  - OEDEMA PERIPHERAL [None]
  - ORAL HERPES [None]
